FAERS Safety Report 6871533-3 (Version None)
Quarter: 2010Q3

REPORT INFORMATION
  Report Type: 
  Country: None (occurrence: None)
  Receive Date: 20100723
  Receipt Date: 20100712
  Transmission Date: 20110219
  Serious: Yes (Hospitalization)
  Sender: FDA-Public Use
  Company Number: PHHY2009JP31675

PATIENT
  Sex: Female

DRUGS (5)
  1. TASIGNA [Suspect]
     Indication: CHRONIC MYELOID LEUKAEMIA
     Dosage: 800 MG DAI;Y
     Route: 048
     Dates: start: 20090714, end: 20090716
  2. ZYLORIC [Concomitant]
     Indication: CHRONIC MYELOID LEUKAEMIA
     Dosage: 100 MG, UNK
     Route: 048
     Dates: start: 20070813
  3. GASMOTIN [Concomitant]
     Indication: RENAL IMPAIRMENT
     Dosage: 10 MG, UNK
     Route: 048
     Dates: start: 20070813
  4. LASIX [Concomitant]
     Indication: PROPHYLAXIS
     Dosage: 20 MG, UNK
     Route: 048
     Dates: start: 20070913
  5. SIMVASTATIN [Concomitant]
     Indication: RENAL IMPAIRMENT
     Dosage: 5 MG, UNK
     Route: 048
     Dates: start: 20070913

REACTIONS (7)
  - BLOOD CREATININE INCREASED [None]
  - BLOOD PRESSURE DECREASED [None]
  - ELECTROCARDIOGRAM QT PROLONGED [None]
  - INFECTION [None]
  - PYREXIA [None]
  - SEPSIS [None]
  - SUPRAVENTRICULAR EXTRASYSTOLES [None]
